FAERS Safety Report 16945257 (Version 1)
Quarter: 2019Q4

REPORT INFORMATION
  Report Type: Spontaneous
  Country: US (occurrence: US)
  Receive Date: 20191022
  Receipt Date: 20191022
  Transmission Date: 20200122
  Serious: Yes (Other)
  Sender: FDA-Public Use
  Company Number: US-CELGENEUS-USA-20191005637

PATIENT
  Age: 61 Year
  Sex: Female

DRUGS (6)
  1. ADI-PEG 20 [Suspect]
     Active Substance: PEGARGIMINASE
     Indication: DUCTAL ADENOCARCINOMA OF PANCREAS
     Route: 065
  2. SELITRECTINIB. [Concomitant]
     Active Substance: SELITRECTINIB
     Indication: DISEASE PROGRESSION
     Dosage: 200 MILLIGRAM
     Route: 065
  3. LAROTRECTINIB [Concomitant]
     Active Substance: LAROTRECTINIB
     Indication: ADVERSE EVENT
     Dosage: 200 MILLIGRAM
     Route: 065
  4. ABRAXANE [Suspect]
     Active Substance: PACLITAXEL
     Indication: DUCTAL ADENOCARCINOMA OF PANCREAS
     Route: 065
  5. GEMCITABINE. [Suspect]
     Active Substance: GEMCITABINE
     Indication: DUCTAL ADENOCARCINOMA OF PANCREAS
     Route: 065
  6. DABRAFENIB TRAMETINIB [Concomitant]
     Indication: DISEASE PROGRESSION
     Route: 065

REACTIONS (1)
  - Haemolytic uraemic syndrome [Unknown]
